FAERS Safety Report 17854982 (Version 1)
Quarter: 2020Q2

REPORT INFORMATION
  Report Type: Spontaneous
  Country: US (occurrence: US)
  Receive Date: 20200603
  Receipt Date: 20200603
  Transmission Date: 20200714
  Serious: Yes (Life-Threatening, Hospitalization)
  Sender: FDA-Public Use
  Company Number: US-MYLANLABS-2020M1053869

PATIENT
  Age: 57 Year
  Sex: Male

DRUGS (2)
  1. ATROPINE. [Suspect]
     Active Substance: ATROPINE
     Indication: CARDIAC ARREST
     Dosage: UNK
     Route: 065
  2. EPINEPHRINE. [Suspect]
     Active Substance: EPINEPHRINE
     Indication: CARDIAC ARREST
     Dosage: UNK
     Route: 065

REACTIONS (1)
  - Sinus tachycardia [Not Recovered/Not Resolved]
